FAERS Safety Report 7578200-1 (Version None)
Quarter: 2011Q2

REPORT INFORMATION
  Report Type: 
  Country: None (occurrence: None)
  Receive Date: 20110628
  Receipt Date: 20110620
  Transmission Date: 20111010
  Serious: Yes (Hospitalization)
  Sender: FDA-Public Use
  Company Number: A0933265A

PATIENT
  Age: 21 Year
  Sex: Female

DRUGS (4)
  1. WELLBUTRIN [Suspect]
     Route: 048
     Dates: end: 20110401
  2. LAMICTAL [Suspect]
     Dosage: 200MG PER DAY
     Route: 048
     Dates: start: 20101201, end: 20110401
  3. STRATTERA [Concomitant]
     Route: 048
  4. VYVANSE [Suspect]
     Indication: ATTENTION DEFICIT/HYPERACTIVITY DISORDER
     Dosage: 50MG PER DAY
     Route: 048
     Dates: start: 20100901

REACTIONS (9)
  - ERYTHEMA [None]
  - PYREXIA [None]
  - BODY TEMPERATURE FLUCTUATION [None]
  - AUTOIMMUNE DISORDER [None]
  - HYPERSENSITIVITY [None]
  - VASCULITIS [None]
  - URTICARIA [None]
  - OEDEMA PERIPHERAL [None]
  - DRUG INTERACTION [None]
